FAERS Safety Report 4507745-3 (Version None)
Quarter: 2004Q4

REPORT INFORMATION
  Report Type: 
  Country: None (occurrence: None)
  Receive Date: 20041018
  Receipt Date: 20040824
  Transmission Date: 20050328
  Serious: No
  Sender: FDA-Public Use
  Company Number: 207307

PATIENT
  Age: 43 Year
  Sex: Female
  Weight: 104.3 kg

DRUGS (12)
  1. XOLAIR [Suspect]
     Indication: ASTHMA
     Dosage: Q2W, SUBCUTANEOUS
     Route: 058
     Dates: start: 20040601
  2. FORTEO [Concomitant]
  3. SINGULAIR [Concomitant]
  4. ADVAIR (FLUTICASONE PROPIONATE, SALMETEROL XINAFOATE) [Concomitant]
  5. ALLEGRA [Concomitant]
  6. PREVACID [Concomitant]
  7. SPIRIVA (TOTROPIUM BROMIDE) [Concomitant]
  8. WELLBUTRIN XL (BUPROPION HYDROCHLORIDE) [Concomitant]
  9. EFFEXOR XR [Concomitant]
  10. XANAX [Concomitant]
  11. ALBUTEROL (ALBUTEROL, ALBUTEROL SULFATE) [Concomitant]
  12. VERAPAMIL [Concomitant]

REACTIONS (1)
  - RIB FRACTURE [None]
